FAERS Safety Report 24409579 (Version 2)
Quarter: 2024Q4

REPORT INFORMATION
  Report Type: Spontaneous
  Country: US (occurrence: US)
  Receive Date: 20241008
  Receipt Date: 20241112
  Transmission Date: 20250115
  Serious: No
  Sender: JOHNSON AND JOHNSON
  Company Number: US-JNJFOC-20240964482

PATIENT
  Age: 71 Year
  Sex: Female

DRUGS (2)
  1. STELARA [Suspect]
     Active Substance: USTEKINUMAB
     Indication: Psoriatic arthropathy
     Route: 058
     Dates: start: 202303
  2. STELARA [Suspect]
     Active Substance: USTEKINUMAB

REACTIONS (5)
  - Device use error [Unknown]
  - Device malfunction [Unknown]
  - Product dose omission issue [Unknown]
  - Speech disorder [Unknown]
  - Confusional state [Unknown]

NARRATIVE: CASE EVENT DATE: 20240922
